FAERS Safety Report 7655601-4 (Version None)
Quarter: 2011Q3

REPORT INFORMATION
  Report Type: 
  Country: None (occurrence: None)
  Receive Date: 20110804
  Receipt Date: 20110803
  Transmission Date: 20111222
  Serious: Yes (Hospitalization)
  Sender: FDA-Public Use
  Company Number: BR-BRISTOL-MYERS SQUIBB COMPANY-15945058

PATIENT
  Age: 72 Year
  Sex: Female

DRUGS (12)
  1. SERTRALINE HYDROCHLORIDE [Concomitant]
     Dates: start: 20110705
  2. IPILIMUMAB [Suspect]
     Indication: MALIGNANT MELANOMA
     Route: 042
     Dates: start: 20110712, end: 20110712
  3. ALPRAZOLAM [Concomitant]
     Dates: start: 19960101
  4. BISACODYL [Concomitant]
     Dates: start: 20110705
  5. BROMOPRIDE [Concomitant]
     Dates: start: 20110705
  6. DIAZEPAM [Concomitant]
     Dates: start: 19960101
  7. DIMOR [Concomitant]
     Dates: start: 20110728
  8. METFORMIN HCL [Concomitant]
     Dates: start: 20080101
  9. OMEPRAZOLE [Concomitant]
     Dates: start: 20110705
  10. DOCUSATE SODIUM [Concomitant]
     Dates: start: 20110705
  11. CLINDAMYCIN [Concomitant]
     Dates: start: 20110723
  12. CIPROFLOXACIN [Concomitant]
     Dates: start: 20110723

REACTIONS (1)
  - CONFUSIONAL STATE [None]
